FAERS Safety Report 13176548 (Version 8)
Quarter: 2018Q2

REPORT INFORMATION
  Report Type: Report from Study
  Country: US (occurrence: US)
  Receive Date: 20170201
  Receipt Date: 20180416
  Transmission Date: 20180711
  Serious: Yes (Hospitalization)
  Sender: FDA-Public Use
  Company Number: US-ACTELION-A-US2016-145813

PATIENT
  Age: 65 Year
  Sex: Female
  Weight: 84.81 kg

DRUGS (6)
  1. OXYGEN. [Concomitant]
     Active Substance: OXYGEN
  2. TRACLEER [Suspect]
     Active Substance: BOSENTAN
     Dosage: UNK
     Route: 048
  3. ELIQUIS [Concomitant]
     Active Substance: APIXABAN
  4. TRACLEER [Suspect]
     Active Substance: BOSENTAN
     Indication: PULMONARY ARTERIAL HYPERTENSION
     Dosage: 125 MG, BID
     Route: 048
     Dates: start: 20121123
  5. TYVASO [Concomitant]
     Active Substance: TREPROSTINIL
  6. XARELTO [Concomitant]
     Active Substance: RIVAROXABAN

REACTIONS (13)
  - Somnolence [Unknown]
  - Oxygen therapy [Unknown]
  - Dyspnoea [Unknown]
  - Pneumonia [Unknown]
  - Amnesia [Unknown]
  - Fatigue [Unknown]
  - Dehydration [Unknown]
  - Lower respiratory tract infection viral [Unknown]
  - Malaise [Unknown]
  - Disturbance in attention [Unknown]
  - Loss of consciousness [Unknown]
  - Bronchitis [Unknown]
  - Drug dose omission [Unknown]
